FAERS Safety Report 8439340-8 (Version None)
Quarter: 2012Q2

REPORT INFORMATION
  Report Type: 
  Country: None (occurrence: None)
  Receive Date: 20120615
  Receipt Date: 20120612
  Transmission Date: 20120825
  Serious: Yes (Hospitalization)
  Sender: FDA-Public Use
  Company Number: PHHY2012DE046932

PATIENT
  Sex: Male
  Weight: 106 kg

DRUGS (15)
  1. AMLODIPINE [Concomitant]
     Indication: HYPERTENSION
     Dosage: 10 MG, DAILY
     Dates: start: 20100101
  2. HUMAN INSULATARD [Concomitant]
     Indication: DIABETES MELLITUS
     Dosage: 40 IU, DAILY
     Dates: start: 20060101
  3. BISOPROLOL FUMARATE [Concomitant]
     Indication: HYPERTENSION
     Dosage: 10 MG, DAILY
     Dates: start: 20100101
  4. ASPIRIN [Concomitant]
     Indication: HYPERTENSION
     Dosage: 100 MG, DAILY
     Dates: start: 20100101
  5. ORAL ANTIDIABETICS [Concomitant]
     Indication: DIABETES MELLITUS
  6. HUMAN INITARD [Concomitant]
     Indication: DIABETES MELLITUS
     Dosage: 72 DF, DAILY
     Dates: start: 20010101
  7. SIMVASTATIN [Concomitant]
     Indication: HYPERLIPIDAEMIA
     Dosage: 20 MG, DAILY
     Route: 048
     Dates: start: 20100101
  8. ACE INHIBITORS [Concomitant]
  9. LOSARTAN POTASSIUM [Concomitant]
     Indication: HYPERTENSION
     Dosage: 100 MG, DAILY
     Dates: start: 20100101
  10. BETA BLOCKING AGENTS [Concomitant]
  11. DIURETICS [Concomitant]
  12. PLATELET AGGREGATION INHIBITORS [Concomitant]
  13. HYDROCHLOROTHIAZIDE [Suspect]
     Indication: HYPERTENSION
     Dosage: 25 MG, DAILY
     Route: 048
     Dates: start: 20100101
  14. RASILEZ [Suspect]
     Indication: HYPERTENSION
     Dosage: 0.5 DF, QD
     Route: 048
     Dates: start: 20081216
  15. HMG COA REDUCTASE INHIBITORS (STATINS) [Concomitant]

REACTIONS (1)
  - CARDIAC FAILURE [None]
